FAERS Safety Report 9661025 (Version 2)
Quarter: 2014Q1

REPORT INFORMATION
  Report Type: Spontaneous
  Country: US (occurrence: US)
  Receive Date: 20131031
  Receipt Date: 20140130
  Transmission Date: 20141002
  Serious: Yes (Other)
  Sender: FDA-Public Use
  Company Number: US-GLAXOSMITHKLINE-A1047157A

PATIENT
  Age: 87 Year
  Sex: Female

DRUGS (27)
  1. ADVAIR HFA [Suspect]
     Indication: PULMONARY FUNCTION TEST DECREASED
     Dosage: 1PUFF TWICE PER DAY
     Route: 055
     Dates: start: 201307, end: 20131019
  2. FLOVENT [Suspect]
     Indication: PULMONARY FUNCTION TEST DECREASED
     Route: 055
  3. SYNTHROID [Concomitant]
  4. LIPITOR [Concomitant]
  5. XANAX [Concomitant]
  6. DIOVAN [Concomitant]
  7. ELMIRON [Concomitant]
  8. NIFEDICAL XL [Concomitant]
  9. DICYCLOMINE [Concomitant]
  10. CIPROFLOXACIN [Concomitant]
  11. UNSPECIFIED [Concomitant]
  12. PROLIA [Concomitant]
  13. ESTRACE CREAM [Concomitant]
  14. CITALOPRAM [Concomitant]
  15. UNSPECIFIED [Concomitant]
  16. CRANBERRY [Concomitant]
  17. L-ARGININE [Concomitant]
  18. CITRACAL [Concomitant]
  19. PRILOSEC [Concomitant]
  20. CENTRUM SILVER [Concomitant]
  21. VITAMIN B12 [Concomitant]
  22. UNSPECIFIED [Concomitant]
  23. VITAMIN D [Concomitant]
  24. ZYRTEC [Concomitant]
  25. PRESERVISION [Concomitant]
  26. RESTASIS [Concomitant]
  27. CYSTEINE [Concomitant]

REACTIONS (5)
  - Cough [Recovering/Resolving]
  - Drug prescribing error [Recovering/Resolving]
  - Synovial cyst [Recovering/Resolving]
  - Limb operation [Recovering/Resolving]
  - Treatment noncompliance [Unknown]
